FAERS Safety Report 19468517 (Version 2)
Quarter: 2021Q3

REPORT INFORMATION
  Report Type: Spontaneous
  Country: GB (occurrence: GB)
  Receive Date: 20210628
  Receipt Date: 20210720
  Transmission Date: 20211014
  Serious: Yes (Hospitalization, Disabling, Other)
  Sender: FDA-Public Use
  Company Number: GB-PERRIGO-21GB008196

PATIENT

DRUGS (3)
  1. IBUPROFEN. [Suspect]
     Active Substance: IBUPROFEN
     Indication: TOOTH ABSCESS
  2. IBUPROFEN. [Suspect]
     Active Substance: IBUPROFEN
     Indication: ILL-DEFINED DISORDER
     Dosage: APPROX 6 X 400MG TABLETS PER DAY
     Route: 048
     Dates: start: 20200901, end: 20200921
  3. IBUPROFEN. [Suspect]
     Active Substance: IBUPROFEN
     Indication: TOOTHACHE

REACTIONS (5)
  - Insomnia [Unknown]
  - Eating disorder [Unknown]
  - Hepatic function abnormal [Recovered/Resolved]
  - Weight decreased [Unknown]
  - Discomfort [Unknown]

NARRATIVE: CASE EVENT DATE: 20200925
